FAERS Safety Report 9099096 (Version 1)
Quarter: 2013Q1

REPORT INFORMATION
  Report Type: Spontaneous
  Country: FR (occurrence: FR)
  Receive Date: 20130213
  Receipt Date: 20130213
  Transmission Date: 20140127
  Serious: Yes (Other)
  Sender: FDA-Public Use
  Company Number: FR-PFIZER INC-2013052771

PATIENT
  Age: 55 Year
  Sex: Female

DRUGS (2)
  1. SUTENT [Suspect]
     Indication: RENAL CANCER
     Dosage: 37.5 MG, 1X/DAY
     Route: 048
     Dates: end: 20121224
  2. SUTENT [Suspect]
     Indication: METASTASES TO BONE

REACTIONS (1)
  - Pleural effusion [Not Recovered/Not Resolved]
